FAERS Safety Report 9769018 (Version 1)
Quarter: 2013Q3

REPORT INFORMATION
  Report Type: Spontaneous
  Country: DE (occurrence: None)
  Receive Date: 20130828
  Receipt Date: 20130828
  Transmission Date: 20140515
  Serious: Yes (Hospitalization)
  Sender: FDA-Public Use
  Company Number: 062-21880-13050938

PATIENT
  Age: 49 Year
  Sex: Male

DRUGS (7)
  1. REVLIMID (LENALIDOMIDE) (CAPSULES) [Suspect]
     Indication: PLASMA CELL MYELOMA
     Route: 048
     Dates: start: 20130409, end: 20130429
  2. ASA (ACETYLSALICYLIC ACID) [Concomitant]
  3. PREDNISOLONE (PREDNISOLONE) [Concomitant]
  4. PANTOPRAZOL (PANTOPRAZOLE SODIUM) [Concomitant]
  5. TRIAMCINOLONE ACETONID (TRIAMCINOLONE ACETONIDE) (CREAM) [Concomitant]
  6. BONDRONAT (IBANDRONIC ACID) [Concomitant]
  7. CORTISONE (CORTISONE) [Concomitant]

REACTIONS (3)
  - Hypersensitivity vasculitis [None]
  - Chills [None]
  - Influenza like illness [None]
